FAERS Safety Report 20919676 (Version 1)
Quarter: 2022Q2

REPORT INFORMATION
  Report Type: Spontaneous
  Country: US (occurrence: None)
  Receive Date: 20220603
  Receipt Date: 20220603
  Transmission Date: 20220721
  Serious: No
  Sender: FDA-Public Use
  Company Number: None

PATIENT
  Age: 3 Year
  Sex: Female

DRUGS (1)
  1. NORDITROPIN [Suspect]
     Active Substance: SOMATROPIN
     Indication: Product used for unknown indication
     Dosage: OTHER QUANTITY : 0.3MG;?FREQUENCY : DAILY;?
     Route: 058
     Dates: start: 20220526

REACTIONS (2)
  - Incorrect dose administered [None]
  - Accidental underdose [None]

NARRATIVE: CASE EVENT DATE: 20220528
